FAERS Safety Report 12995472 (Version 2)
Quarter: 2016Q4

REPORT INFORMATION
  Report Type: Spontaneous
  Country: JP (occurrence: JP)
  Receive Date: 20161202
  Receipt Date: 20161221
  Transmission Date: 20170207
  Serious: Yes (Hospitalization, Other)
  Sender: FDA-Public Use
  Company Number: JP-BAYER-2016-223018

PATIENT
  Age: 79 Year
  Sex: Male

DRUGS (1)
  1. STIVARGA [Suspect]
     Active Substance: REGORAFENIB
     Indication: COLON CANCER
     Dosage: UNK
     Route: 048
     Dates: start: 201610, end: 2016

REACTIONS (7)
  - Renal impairment [None]
  - Intestinal obstruction [None]
  - Oedema peripheral [None]
  - Depressed level of consciousness [None]
  - Hepatic function abnormal [None]
  - Dry skin [None]
  - Ascites [None]

NARRATIVE: CASE EVENT DATE: 2016
